FAERS Safety Report 12667776 (Version 1)
Quarter: 2016Q3

REPORT INFORMATION
  Report Type: Spontaneous
  Country: US (occurrence: US)
  Receive Date: 20160819
  Receipt Date: 20160819
  Transmission Date: 20161109
  Serious: Yes (Hospitalization)
  Sender: FDA-Public Use
  Company Number: US-ASTRAZENECA-2016SE88158

PATIENT
  Sex: Female
  Weight: 75.3 kg

DRUGS (3)
  1. BYETTA [Suspect]
     Active Substance: EXENATIDE
     Indication: DIABETES MELLITUS
     Dosage: 10MCG TWICE A DAY, BEFORE HER MORNING AND EVENING MEAL
     Route: 058
  2. GLUCOPHAGE [Concomitant]
     Active Substance: METFORMIN HYDROCHLORIDE
     Indication: DIABETES MELLITUS
     Dosage: GENERIC
     Route: 048
  3. GLIMEPRIDE [Concomitant]
     Active Substance: GLIMEPIRIDE
     Indication: DIABETES MELLITUS
     Route: 048

REACTIONS (6)
  - Cardiac disorder [Unknown]
  - Weight decreased [Unknown]
  - Blood pressure increased [Unknown]
  - Decreased appetite [Unknown]
  - Feeling abnormal [Unknown]
  - Device leakage [Unknown]
